FAERS Safety Report 14584559 (Version 4)
Quarter: 2021Q2

REPORT INFORMATION
  Report Type: Other
  Country: CA (occurrence: CA)
  Receive Date: 20180301
  Receipt Date: 20210524
  Transmission Date: 20210716
  Serious: Yes (Other)
  Sender: FDA-Public Use
  Company Number: CA-ROCHE-2079554

PATIENT
  Age: 41 Year
  Sex: Female

DRUGS (14)
  1. SINGULAIR [Concomitant]
     Active Substance: MONTELUKAST SODIUM
  2. BENADRYL [Concomitant]
     Active Substance: DIPHENHYDRAMINE HYDROCHLORIDE
  3. MONTELUKAST SODIUM. [Suspect]
     Active Substance: MONTELUKAST SODIUM
     Indication: ASTHMA
     Route: 048
     Dates: start: 2007
  4. ZENHALE [Concomitant]
     Active Substance: FORMOTEROL FUMARATE\MOMETASONE FUROATE
  5. PANTOLOC [Concomitant]
     Active Substance: PANTOPRAZOLE SODIUM
  6. REACTINE (CANADA) [Concomitant]
     Active Substance: CETIRIZINE HYDROCHLORIDE
  7. ESTRACE [Concomitant]
     Active Substance: ESTRADIOL
  8. SYNTHROID [Concomitant]
     Active Substance: LEVOTHYROXINE SODIUM
  9. DIVALPROEX SODIUM. [Concomitant]
     Active Substance: DIVALPROEX SODIUM
  10. XOLAIR [Suspect]
     Active Substance: OMALIZUMAB
     Indication: ASTHMA
     Route: 058
     Dates: start: 20180212
  11. LORAZEPAM. [Concomitant]
     Active Substance: LORAZEPAM
  12. VENTOLIN [Concomitant]
     Active Substance: ALBUTEROL SULFATE
  13. SPIRIVA [Concomitant]
     Active Substance: TIOTROPIUM BROMIDE MONOHYDRATE
  14. FUROSEMIDE. [Concomitant]
     Active Substance: FUROSEMIDE

REACTIONS (13)
  - Hyperhidrosis [Unknown]
  - Urticaria [Unknown]
  - Migraine [Unknown]
  - Insomnia [Unknown]
  - Anaphylactic shock [Unknown]
  - Arthralgia [Unknown]
  - Weight decreased [Unknown]
  - Nasopharyngitis [Unknown]
  - Formication [Unknown]
  - Forced expiratory volume decreased [Unknown]
  - Feeling cold [Not Recovered/Not Resolved]
  - Feeling hot [Recovered/Resolved]
  - Pain [Unknown]

NARRATIVE: CASE EVENT DATE: 20180215
